FAERS Safety Report 9362213 (Version 1)
Quarter: 2013Q2

REPORT INFORMATION
  Report Type: Spontaneous
  Country: FR (occurrence: FR)
  Receive Date: 20130622
  Receipt Date: 20130622
  Transmission Date: 20140414
  Serious: Yes (Hospitalization)
  Sender: FDA-Public Use
  Company Number: FR-ACCORD-018128

PATIENT
  Age: 47 Year
  Sex: Male

DRUGS (4)
  1. IRINOTECAN HYDROCHLORIDE [Suspect]
     Indication: PANCREATIC CARCINOMA METASTATIC
  2. GRANULOCYTE COLONY STIMULATING FACT [Concomitant]
     Indication: PROPHYLAXIS
  3. FLUOROURACIL [Suspect]
     Indication: PANCREATIC CARCINOMA METASTATIC
  4. OXALIPLATIN [Suspect]
     Indication: PANCREATIC CARCINOMA METASTATIC

REACTIONS (4)
  - Bronchopulmonary aspergillosis [Recovered/Resolved]
  - Pneumocystis jirovecii pneumonia [Recovered/Resolved]
  - Febrile neutropenia [Unknown]
  - Off label use [Unknown]
